FAERS Safety Report 13506355 (Version 1)
Quarter: 2017Q2

REPORT INFORMATION
  Report Type: Spontaneous
  Country: US (occurrence: US)
  Receive Date: 20170502
  Receipt Date: 20170502
  Transmission Date: 20170830
  Serious: No
  Sender: FDA-Public Use
  Company Number: US-ROCHE-1277550

PATIENT
  Age: 70 Year
  Sex: Female

DRUGS (6)
  1. ATENOLOL. [Concomitant]
     Active Substance: ATENOLOL
     Indication: ATRIAL FIBRILLATION
     Dosage: START 3 YRS AGO
     Route: 065
  2. MICARDIS [Concomitant]
     Active Substance: TELMISARTAN
     Dosage: HALF EVERY OTHER DAY, STARTING APPROX 1.5 YRS AGO
     Route: 065
  3. PRADAXA [Concomitant]
     Active Substance: DABIGATRAN ETEXILATE MESYLATE
     Indication: ATRIAL FIBRILLATION
     Dosage: START 3 YRS AGO, FOR 8 MONTHS
     Route: 065
  4. ATORVASTATIN [Concomitant]
     Active Substance: ATORVASTATIN
     Dosage: START APPROX 2 YRS AGO
     Route: 065
  5. AVASTIN [Suspect]
     Active Substance: BEVACIZUMAB
     Indication: NEOVASCULAR AGE-RELATED MACULAR DEGENERATION
     Dosage: LEFT EYE
     Route: 050
     Dates: start: 20130305
  6. MICARDIS [Concomitant]
     Active Substance: TELMISARTAN
     Indication: BLOOD PRESSURE MEASUREMENT
     Dosage: START APPROX 2 YRS AGO
     Route: 065

REACTIONS (5)
  - Viral upper respiratory tract infection [Unknown]
  - Weight decreased [Not Recovered/Not Resolved]
  - Blood potassium increased [Not Recovered/Not Resolved]
  - Pyrexia [Unknown]
  - Influenza [Unknown]

NARRATIVE: CASE EVENT DATE: 20130725
